FAERS Safety Report 8406825-X (Version None)
Quarter: 2012Q2

REPORT INFORMATION
  Report Type: 
  Country: None (occurrence: None)
  Receive Date: 20120529
  Receipt Date: 20030507
  Transmission Date: 20120825
  Serious: Yes (Other)
  Sender: FDA-Public Use
  Company Number: 000817

PATIENT
  Age: 78 Year
  Sex: Male

DRUGS (5)
  1. ATORVASTATIN [Concomitant]
  2. ADIZEM (DILTIAZEM HYDROCHLORIDE) [Concomitant]
  3. PLETAL [Suspect]
     Dosage: 100 MG, BID, ORAL
     Route: 048
     Dates: start: 20030417, end: 20030424
  4. ENALAPRIL MALEATE [Concomitant]
  5. ASPIRIN [Concomitant]

REACTIONS (3)
  - BRADYCARDIA [None]
  - EXTRASYSTOLES [None]
  - ATRIOVENTRICULAR BLOCK [None]
